FAERS Safety Report 7533487-6 (Version None)
Quarter: 2011Q2

REPORT INFORMATION
  Report Type: 
  Country: None (occurrence: None)
  Receive Date: 20110608
  Receipt Date: 20060106
  Transmission Date: 20111010
  Serious: Yes (Hospitalization)
  Sender: FDA-Public Use
  Company Number: PHHO2006PH00674

PATIENT
  Sex: Female

DRUGS (4)
  1. ANTACIDS [Concomitant]
  2. PREDNISONE [Concomitant]
  3. CARVEDILOL [Concomitant]
  4. DIOVAN [Suspect]
     Indication: HYPERTENSION
     Dosage: 80 MG, QD
     Route: 048
     Dates: start: 20051121, end: 20060105

REACTIONS (1)
  - CEREBROVASCULAR ACCIDENT [None]
